FAERS Safety Report 4593799-5 (Version None)
Quarter: 2005Q1

REPORT INFORMATION
  Report Type: 
  Country: None (occurrence: None)
  Receive Date: 20050301
  Receipt Date: 20041222
  Transmission Date: 20050727
  Serious: Yes (Death, Hospitalization)
  Sender: FDA-Public Use
  Company Number: PHBS2004JP17154

PATIENT
  Age: 14 Month
  Sex: Male
  Weight: 8 kg

DRUGS (15)
  1. CELLCEPT [Concomitant]
     Indication: GRAFT VERSUS HOST DISEASE
     Dates: start: 20040531
  2. PROGRAF [Concomitant]
     Indication: CORD BLOOD TRANSPLANT THERAPY
     Dosage: UNK, UNK
     Dates: start: 20040507, end: 20040623
  3. BAKTAR [Concomitant]
     Dosage: 0.5 G/DAY
     Route: 048
  4. ULCERLMIN [Concomitant]
     Dosage: 6 ML/DAY
     Route: 048
  5. FUNGIZONE [Concomitant]
     Dosage: 3 ML/DAY
     Route: 048
  6. BIOFERMIN [Concomitant]
     Dosage: 0.6 G/DAY
     Route: 048
  7. METHYLPREDNISOLONE SODIUM SUCCINATE [Suspect]
     Indication: CORD BLOOD TRANSPLANT THERAPY
     Dosage: 100 MG/DAY
     Route: 042
     Dates: start: 20031012
  8. METHYLPREDNISOLONE SODIUM SUCCINATE [Suspect]
     Dosage: 7 MG/DAY
  9. METHYLPREDNISOLONE SODIUM SUCCINATE [Suspect]
     Dosage: 15 MG/DAY
     Dates: start: 20040320
  10. METHYLPREDNISOLONE SODIUM SUCCINATE [Suspect]
     Dosage: 100 MG/DAY
     Dates: start: 20040329
  11. METHYLPREDNISOLONE SODIUM SUCCINATE [Suspect]
     Dosage: 75 MG/DAY
     Dates: start: 20040401
  12. ATGAM [Concomitant]
     Indication: CORD BLOOD TRANSPLANT THERAPY
  13. SANDIMMUNE [Suspect]
     Indication: CORD BLOOD TRANSPLANT THERAPY
     Dosage: 25 MG/DAY
     Route: 042
     Dates: start: 20040121, end: 20040418
  14. BUSULFAN [Concomitant]
  15. CYCLOPHOSPHAMIDE [Concomitant]

REACTIONS (19)
  - BLOOD BILIRUBIN INCREASED [None]
  - DIARRHOEA [None]
  - GRAFT VERSUS HOST DISEASE [None]
  - HAEMATOCHEZIA [None]
  - HAEMOLYTIC ANAEMIA [None]
  - HAPTOGLOBIN DECREASED [None]
  - INTESTINAL ISCHAEMIA [None]
  - INTESTINAL OBSTRUCTION [None]
  - MELAENA [None]
  - MULTI-ORGAN FAILURE [None]
  - PROTEIN-LOSING GASTROENTEROPATHY [None]
  - REFRACTORINESS TO PLATELET TRANSFUSION [None]
  - RENAL IMPAIRMENT [None]
  - RESPIRATORY ARREST [None]
  - RESPIRATORY FAILURE [None]
  - SEPSIS [None]
  - THROMBOCYTOPENIA [None]
  - THROMBOSIS [None]
  - THROMBOTIC MICROANGIOPATHY [None]
